FAERS Safety Report 6164692-1 (Version None)
Quarter: 2009Q2

REPORT INFORMATION
  Report Type: 
  Country: None (occurrence: None)
  Receive Date: 20090423
  Receipt Date: 20080409
  Transmission Date: 20091009
  Serious: Yes (Hospitalization)
  Sender: FDA-Public Use
  Company Number: US-KINGPHARMUSA00001-K200800421

PATIENT
  Sex: Female

DRUGS (6)
  1. TAPAZOLE [Suspect]
     Indication: HYPERTHYROIDISM
     Dosage: 25 MG, QD
     Route: 048
     Dates: start: 20080101
  2. TAPAZOLE [Suspect]
     Dosage: 30 MG, QD
     Route: 048
     Dates: start: 20050101, end: 20080101
  3. VITAMIN B                          /90046501/ [Concomitant]
     Dosage: UNK, QD
  4. VITAMIN C                          /00008001/ [Concomitant]
     Dosage: UNK, QD
  5. VITAMIN A [Concomitant]
     Dosage: UNK, QD
  6. CALCIUM [Concomitant]
     Dosage: UNK, QD

REACTIONS (8)
  - ANAEMIA [None]
  - HAEMATOCRIT DECREASED [None]
  - HAEMOGLOBIN DECREASED [None]
  - HAEMORRHAGE [None]
  - LEUKOPENIA [None]
  - PAIN [None]
  - POST PROCEDURAL HAEMORRHAGE [None]
  - THROMBOCYTOPENIA [None]
